FAERS Safety Report 8125842-0 (Version None)
Quarter: 2012Q1

REPORT INFORMATION
  Report Type: 
  Country: None (occurrence: None)
  Receive Date: 20120209
  Receipt Date: 20120203
  Transmission Date: 20120608
  Serious: Yes (Hospitalization)
  Sender: FDA-Public Use
  Company Number: US-ELI_LILLY_AND_COMPANY-US201202001558

PATIENT
  Sex: Male

DRUGS (2)
  1. CIALIS [Suspect]
     Indication: ERECTILE DYSFUNCTION
     Dosage: 5 MG, PRN
     Dates: start: 20111201
  2. IBUPROFEN [Concomitant]
     Dosage: 600 MG, BID
     Dates: start: 20120112, end: 20120112

REACTIONS (1)
  - RHABDOMYOLYSIS [None]
